FAERS Safety Report 24693954 (Version 1)
Quarter: 2024Q4

REPORT INFORMATION
  Report Type: Spontaneous
  Country: US (occurrence: US)
  Receive Date: 20241204
  Receipt Date: 20241204
  Transmission Date: 20250115
  Serious: No
  Sender: PACIRA
  Company Number: US-ORG100016242-2024000033

PATIENT
  Age: 90 Year
  Sex: Male

DRUGS (4)
  1. ZILRETTA [Suspect]
     Active Substance: TRIAMCINOLONE ACETONIDE
     Indication: Osteoarthritis
     Dosage: DOSAGE NOT PROVIDED, LEFT KNEE
     Route: 065
     Dates: start: 201909, end: 201909
  2. ZILRETTA [Suspect]
     Active Substance: TRIAMCINOLONE ACETONIDE
     Indication: Osteoarthritis
     Dosage: DOSAGE NOT PROVIDED, LEFT KNEE
     Route: 065
     Dates: start: 20221208, end: 20221208
  3. ZILRETTA [Suspect]
     Active Substance: TRIAMCINOLONE ACETONIDE
     Indication: Osteoarthritis
     Dosage: DOSAGE NOT PROVIDED, LEFT KNEE
     Route: 065
     Dates: start: 20230313, end: 20230313
  4. ZILRETTA [Suspect]
     Active Substance: TRIAMCINOLONE ACETONIDE
     Indication: Osteoarthritis
     Dosage: DOSAGE NOT PROVIDED, LEFT KNEE
     Route: 065
     Dates: start: 20230921, end: 20230921

REACTIONS (1)
  - Illness [Unknown]
